FAERS Safety Report 8659048 (Version 2)
Quarter: 2012Q4

REPORT INFORMATION
  Report Type: 
  Country: DE (occurrence: DE)
  Receive Date: 20120710
  Receipt Date: 20121119
  Transmission Date: 20130627
  Serious: Yes (Hospitalization)
  Sender: FDA-Public Use
  Company Number: CHPA2012DE014145

PATIENT
  Sex: Female

DRUGS (1)
  1. EXCEDRIN UNKNOWN [Suspect]
     Dosage: Unk, Unk
     Route: 048
     Dates: start: 2011

REACTIONS (2)
  - Hypersensitivity [Unknown]
  - Malaise [Unknown]
